FAERS Safety Report 20063471 (Version 1)
Quarter: 2021Q4

REPORT INFORMATION
  Report Type: Report from Study
  Country: US (occurrence: US)
  Receive Date: 20211112
  Receipt Date: 20211112
  Transmission Date: 20220303
  Serious: Yes (Hospitalization)
  Sender: FDA-Public Use
  Company Number: US-GILEAD-2021-0555471

PATIENT
  Age: 16 Year
  Sex: Female

DRUGS (4)
  1. AZTREONAM LYSINE [Suspect]
     Active Substance: AZTREONAM LYSINE
     Indication: Asthma
     Dosage: 1 ML, TID FOR 28 DAYS, CYCLE EVERY OTHER 28 DAYS
     Route: 055
     Dates: start: 20210626
  2. BUDESONIDE [Concomitant]
     Active Substance: BUDESONIDE
  3. LORATADINE [Concomitant]
     Active Substance: LORATADINE
  4. LEVALBUTEROL HYDROCHLORIDE [Concomitant]
     Active Substance: LEVALBUTEROL HYDROCHLORIDE

REACTIONS (3)
  - Respiratory tract infection [Unknown]
  - Oxygen saturation decreased [Unknown]
  - Off label use [Unknown]

NARRATIVE: CASE EVENT DATE: 20210626
